FAERS Safety Report 12640637 (Version 1)
Quarter: 2016Q3

REPORT INFORMATION
  Report Type: Report from Study
  Country: JP (occurrence: JP)
  Receive Date: 20160810
  Receipt Date: 20160810
  Transmission Date: 20161109
  Serious: Yes (Hospitalization, Other)
  Sender: FDA-Public Use
  Company Number: PHHY2012JP137956

PATIENT
  Age: 10 Year
  Sex: Male
  Weight: 32.3 kg

DRUGS (12)
  1. NELARABINE [Suspect]
     Active Substance: NELARABINE
     Dosage: 650 MG/M2, QD
     Route: 041
     Dates: start: 20101101, end: 20101105
  2. DEXAMETHASONE. [Suspect]
     Active Substance: DEXAMETHASONE
     Indication: PRODUCT USED FOR UNKNOWN INDICATION
     Dosage: UNK
     Route: 065
  3. CYCLOPHOSPHAMIDE. [Suspect]
     Active Substance: CYCLOPHOSPHAMIDE
     Indication: PRODUCT USED FOR UNKNOWN INDICATION
     Dosage: UNK
     Route: 065
  4. NELARABINE [Suspect]
     Active Substance: NELARABINE
     Dosage: 650 MG/M2, QD
     Route: 041
     Dates: start: 20101108, end: 20101108
  5. NELARABINE [Suspect]
     Active Substance: NELARABINE
     Dosage: 650 MG/M2, QD
     Route: 041
     Dates: start: 20110419, end: 20110423
  6. NELARABINE [Suspect]
     Active Substance: NELARABINE
     Dosage: 650 MG/M2, QD
     Route: 041
     Dates: start: 20110628, end: 20110702
  7. METHOTREXATE. [Suspect]
     Active Substance: METHOTREXATE
     Indication: PRODUCT USED FOR UNKNOWN INDICATION
     Dosage: UNK
     Route: 065
  8. LEUKERIN [Suspect]
     Active Substance: MERCAPTOPURINE
     Indication: PRODUCT USED FOR UNKNOWN INDICATION
     Dosage: UNK
     Route: 065
  9. NELARABINE [Suspect]
     Active Substance: NELARABINE
     Dosage: 650 MG/M2, QD
     Route: 041
     Dates: start: 20110913, end: 20110917
  10. BAKTAR [Concomitant]
     Active Substance: SULFAMETHOXAZOLE\TRIMETHOPRIM
     Indication: PRODUCT USED FOR UNKNOWN INDICATION
     Dosage: UNK
     Route: 048
     Dates: start: 20100510
  11. NELARABINE [Suspect]
     Active Substance: NELARABINE
     Indication: PRECURSOR T-LYMPHOBLASTIC LYMPHOMA/LEUKAEMIA
     Dosage: 650 MG/M2, QD
     Route: 041
     Dates: start: 20100813, end: 20100817
  12. NELARABINE [Suspect]
     Active Substance: NELARABINE
     Dosage: 650 MG/M2, QD
     Route: 041
     Dates: start: 20111108, end: 20111112

REACTIONS (5)
  - Febrile neutropenia [Recovered/Resolved]
  - Febrile neutropenia [Recovered/Resolved]
  - Cytopenia [Recovered/Resolved]
  - Liver disorder [Recovered/Resolved]
  - Blister [Recovered/Resolved]

NARRATIVE: CASE EVENT DATE: 20100813
